FAERS Safety Report 6094409-0 (Version None)
Quarter: 2009Q1

REPORT INFORMATION
  Report Type: 
  Country: None (occurrence: None)
  Receive Date: 20090226
  Receipt Date: 20090223
  Transmission Date: 20090719
  Serious: Yes (Hospitalization)
  Sender: FDA-Public Use
  Company Number: US-BRISTOL-MYERS SQUIBB COMPANY-14516900

PATIENT
  Age: 61 Year
  Sex: Male
  Weight: 54 kg

DRUGS (4)
  1. AMPHOTERICIN B [Suspect]
     Indication: HISTOPLASMOSIS
     Dosage: 1.0 MG TO 50 MG (DISSOLVED IN 500 ML TO 1,000 ML OF 5% DEXTROSE IN WATER,527MG 1250MG
     Route: 042
  2. HYDROCORTISONE [Suspect]
     Dosage: 1DF=25-40MG,375 MG
     Route: 042
  3. HEPARIN [Suspect]
     Route: 042
  4. DIPHENHYDRAMINE HCL [Suspect]
     Route: 048

REACTIONS (6)
  - CARDIAC FAILURE CONGESTIVE [None]
  - CARDIOMEGALY [None]
  - CREATININE RENAL CLEARANCE DECREASED [None]
  - HYPOKALAEMIA [None]
  - ORTHOSTATIC HYPOTENSION [None]
  - WEIGHT INCREASED [None]
